FAERS Safety Report 10705657 (Version 7)
Quarter: 2015Q2

REPORT INFORMATION
  Report Type: Spontaneous
  Country: US (occurrence: US)
  Receive Date: 20150112
  Receipt Date: 20150630
  Transmission Date: 20150821
  Serious: Yes (Other)
  Sender: FDA-Public Use
  Company Number: US-GLAXOSMITHKLINE-A1089933A

PATIENT

DRUGS (2)
  1. PROMACTA [Suspect]
     Active Substance: ELTROMBOPAG OLAMINE
     Indication: LYMPHOMA
     Dosage: 50 MG, QD
     Route: 048
     Dates: start: 20140822, end: 20150203
  2. PROMACTA [Suspect]
     Active Substance: ELTROMBOPAG OLAMINE
     Indication: EXTRANODAL MARGINAL ZONE B-CELL LYMPHOMA (MALT TYPE)

REACTIONS (6)
  - Drug ineffective [Unknown]
  - Pruritus [Unknown]
  - Memory impairment [Unknown]
  - Thrombocytopenia [Not Recovered/Not Resolved]
  - Tremor [Unknown]
  - Constipation [Unknown]

NARRATIVE: CASE EVENT DATE: 20141219
